FAERS Safety Report 4379331-X (Version None)
Quarter: 2004Q2

REPORT INFORMATION
  Report Type: 
  Country: None (occurrence: None)
  Receive Date: 20040617
  Receipt Date: 20040611
  Transmission Date: 20050107
  Serious: Yes (Hospitalization)
  Sender: FDA-Public Use
  Company Number: FR-BRISTOL-MYERS SQUIBB COMPANY-12613345

PATIENT
  Age: 38 Year
  Sex: Female

DRUGS (4)
  1. VIDEX [Suspect]
     Indication: HIV INFECTION
     Route: 048
     Dates: start: 20040209, end: 20040327
  2. SUSTIVA [Concomitant]
     Dates: start: 20040209
  3. EPIVIR [Concomitant]
     Dates: start: 20030715
  4. ZIAGEN [Concomitant]
     Dates: start: 20040209

REACTIONS (1)
  - PANCREATITIS [None]
